FAERS Safety Report 21554649 (Version 1)
Quarter: 2022Q4

REPORT INFORMATION
  Report Type: Spontaneous
  Country: GB (occurrence: GB)
  Receive Date: 20221104
  Receipt Date: 20221104
  Transmission Date: 20230113
  Serious: Yes (Hospitalization, Other)
  Sender: FDA-Public Use
  Company Number: None

PATIENT
  Age: 83 Year
  Sex: Female

DRUGS (19)
  1. LANSOPRAZOLE [Suspect]
     Active Substance: LANSOPRAZOLE
     Indication: Product used for unknown indication
     Dosage: 30 MILLIGRAM, QD (EACH MORNING)
     Route: 065
  2. ALENDRONIC ACID [Concomitant]
     Active Substance: ALENDRONIC ACID
     Dosage: 70 MILLIGRAM, QW (WITH FULL GLASS OF WATER STANDING UP 30 MIN BEFORE FOOD/DRINK; TUESDAYS)
     Route: 065
  3. ASPIRIN [Concomitant]
     Active Substance: ASPIRIN
     Dosage: 75 MILLIGRAM, QD (DISSOLVE IN WATER AND TAKE WITH OR AFTER FOOD; NOT IN BLISTER PACK)
     Route: 065
  4. ATORVASTATIN [Concomitant]
     Active Substance: ATORVASTATIN
     Dosage: 80 MILLIGRAM, QD (NIGHT)
     Route: 065
  5. AZITHROMYCIN [Concomitant]
     Active Substance: AZITHROMYCIN
     Dosage: 250 MILLIGRAM, 3XW (ON MON, WED AND FRI; NOT IN BLISTER PACK)
     Route: 065
  6. CLOPIDOGREL [Concomitant]
     Active Substance: CLOPIDOGREL BISULFATE
     Dosage: 75 MILLIGRAM, QD (MORNING)
     Route: 065
     Dates: end: 20220923
  7. DEMECLOCYCLINE [Concomitant]
     Active Substance: DEMECLOCYCLINE
     Dosage: 300 MILLIGRAM, QID (NOT IN BLISTER PACK)
     Route: 065
  8. EZETIMIBE [Concomitant]
     Active Substance: EZETIMIBE
     Dosage: 10 MILLIGRAM, QD (MORNING)
     Route: 065
     Dates: end: 20221020
  9. FAMOTIDINE [Concomitant]
     Active Substance: FAMOTIDINE
     Dosage: UNK
     Route: 065
  10. POLYETHYLENE GLYCOLS [Concomitant]
     Active Substance: POLYETHYLENE GLYCOLS
     Dosage: UNK
     Route: 065
  11. METFORMIN [Concomitant]
     Active Substance: METFORMIN HYDROCHLORIDE
     Dosage: 500 MILLIGRAM, QD (WITH BREAKFAST; MORNING)
     Route: 065
  12. POLYETHYLENE GLYCOL 3350\POTASSIUM CHLORIDE\SODIUM BICARBONATE\SODIUM [Concomitant]
     Active Substance: POLYETHYLENE GLYCOL 3350\POTASSIUM CHLORIDE\SODIUM BICARBONATE\SODIUM CHLORIDE
     Dosage: 1 DOSAGE FORM, BID (DISSOLVE CONTENTS OF ONE SACHET IN HALF A GLASS (125ML) OF WATER)
     Route: 065
  13. RANOLAZINE [Concomitant]
     Active Substance: RANOLAZINE
     Dosage: 375 MILLIGRAM, BID (MORNING AND NIGHT)
     Route: 065
  14. ALBUTEROL [Concomitant]
     Active Substance: ALBUTEROL
     Dosage: UNK, PRN (ONE OR TWO PUFFS FOUR TIMES A DAY; 100MICROGRAMS/DOSE)
     Route: 055
  15. ZOPICLONE [Concomitant]
     Active Substance: ZOPICLONE
     Indication: Insomnia
     Dosage: 3.75 MILLIGRAM, PRN (AT NIGHT)
     Route: 065
  16. TRELEGY ELLIPTA [Concomitant]
     Active Substance: FLUTICASONE FUROATE\UMECLIDINIUM BROMIDE\VILANTEROL TRIFENATATE
     Dosage: 1 DOSAGE FORM, QD
     Route: 055
  17. FOLIC ACID [Concomitant]
     Active Substance: FOLIC ACID
     Dosage: 5 MILLIGRAM, QD (MORNING)
     Route: 065
  18. SENNA [Concomitant]
     Active Substance: SENNA LEAF\SENNOSIDES\SENNOSIDES A AND B
     Indication: Constipation
     Dosage: 15 MILLIGRAM, PRN (AT NIGHT)
     Route: 065
  19. CALCIUM\CHOLECALCIFEROL [Concomitant]
     Active Substance: CALCIUM\CHOLECALCIFEROL
     Dosage: 1 DOSAGE FORM, BID (COLECALCIFEROL 400UNIT / CALCIUM CARBONATE 1.5G; MORNING AND NIGHT)
     Route: 065

REACTIONS (2)
  - Hyponatraemia [Recovering/Resolving]
  - Hypomagnesaemia [Recovering/Resolving]
